FAERS Safety Report 14075129 (Version 1)
Quarter: 2017Q4

REPORT INFORMATION
  Report Type: Spontaneous
  Country: GB (occurrence: GB)
  Receive Date: 20171011
  Receipt Date: 20171011
  Transmission Date: 20180321
  Serious: Yes (Hospitalization, Other)
  Sender: FDA-Public Use
  Company Number: GB-MYLANLABS-2017M1062493

PATIENT
  Age: 53 Year
  Sex: Male
  Weight: 99 kg

DRUGS (20)
  1. CITALOPRAM [Suspect]
     Active Substance: CITALOPRAM HYDROBROMIDE
     Indication: DEPRESSION
     Dosage: ONGOING
     Route: 048
  2. COTRIMOXAZOLE [Concomitant]
     Active Substance: SULFAMETHOXAZOLE\TRIMETHOPRIM
  3. SODIUM BICARBONATE. [Concomitant]
     Active Substance: SODIUM BICARBONATE
  4. NYSTATIN. [Concomitant]
     Active Substance: NYSTATIN
  5. PREDNISOLONE. [Concomitant]
     Active Substance: PREDNISOLONE
  6. LEVOTHYROXINE. [Concomitant]
     Active Substance: LEVOTHYROXINE
  7. MYCOPHENOLATE SODIUM [Concomitant]
     Active Substance: MYCOPHENOLATE SODIUM
  8. CALCICHEW [Concomitant]
     Active Substance: CALCIUM CARBONATE
  9. DARBEPOETIN ALFA [Concomitant]
     Active Substance: DARBEPOETIN ALFA
  10. VALGANCICLOVIR. [Concomitant]
     Active Substance: VALGANCICLOVIR
  11. ADOPORT [Concomitant]
     Active Substance: TACROLIMUS
  12. ONDANSETRON [Suspect]
     Active Substance: ONDANSETRON
     Indication: NAUSEA
     Route: 048
     Dates: start: 20170425, end: 20170612
  13. HUMULIN M3 [Concomitant]
     Active Substance: INSULIN HUMAN
  14. PARACETAMOL [Concomitant]
     Active Substance: ACETAMINOPHEN
  15. LORAZEPAM. [Concomitant]
     Active Substance: LORAZEPAM
  16. HEPARIN [Concomitant]
     Active Substance: HEPARIN SODIUM
  17. TRAMADOL. [Suspect]
     Active Substance: TRAMADOL
     Indication: PAIN
     Route: 048
     Dates: start: 20170425, end: 20170612
  18. OMEPRAZOLE. [Concomitant]
     Active Substance: OMEPRAZOLE
  19. ALFACALCIDOL [Concomitant]
     Active Substance: ALFACALCIDOL
  20. ASPIRIN. [Concomitant]
     Active Substance: ASPIRIN

REACTIONS (4)
  - Confusional state [Recovering/Resolving]
  - Disorientation [Recovering/Resolving]
  - Tremor [Recovering/Resolving]
  - Mydriasis [Recovering/Resolving]

NARRATIVE: CASE EVENT DATE: 20170612
